FAERS Safety Report 13390931 (Version 1)
Quarter: 2017Q1

REPORT INFORMATION
  Report Type: Spontaneous
  Country: US (occurrence: US)
  Receive Date: 20170326
  Receipt Date: 20170326
  Transmission Date: 20170429
  Serious: Yes (Hospitalization)
  Sender: FDA-Public Use
  Company Number: None

PATIENT
  Age: 76 Year
  Sex: Female

DRUGS (2)
  1. CHLORHEXIDINE GLUCONATE CLOTHS [Suspect]
     Active Substance: CHLORHEXIDINE GLUCONATE
     Indication: PREOPERATIVE CARE
     Route: 061
     Dates: start: 20160928, end: 20160928
  2. CHLORHEXIDINE GLUCONATE CLOTHS [Suspect]
     Active Substance: CHLORHEXIDINE GLUCONATE
     Indication: INFECTION PROPHYLAXIS
     Route: 061
     Dates: start: 20160928, end: 20160928

REACTIONS (3)
  - Skin odour abnormal [None]
  - Unevaluable event [None]
  - Application site pruritus [None]

NARRATIVE: CASE EVENT DATE: 20160928
